FAERS Safety Report 10589629 (Version 1)
Quarter: 2014Q4

REPORT INFORMATION
  Report Type: Report from Study
  Country: AU (occurrence: None)
  Receive Date: 20141114
  Receipt Date: 20141114
  Transmission Date: 20150529
  Serious: Yes (Death, Other)
  Sender: FDA-Public Use
  Company Number: 2014-20583

PATIENT
  Age: 78 Year
  Sex: Male

DRUGS (1)
  1. EYLEA [Suspect]
     Active Substance: AFLIBERCEPT
     Indication: AGE-RELATED MACULAR DEGENERATION
     Dosage: RIGHT EYE
     Route: 031
     Dates: start: 20131017, end: 20131017

REACTIONS (2)
  - Bone cancer metastatic [None]
  - Lung cancer metastatic [None]

NARRATIVE: CASE EVENT DATE: 20140821
